FAERS Safety Report 18485167 (Version 1)
Quarter: 2020Q4

REPORT INFORMATION
  Report Type: Spontaneous
  Country: US (occurrence: US)
  Receive Date: 20201109
  Receipt Date: 20201109
  Transmission Date: 20210114
  Serious: Yes (Hospitalization)
  Sender: FDA-Public Use
  Company Number: None

PATIENT
  Sex: Male

DRUGS (3)
  1. TAFINLAR [Suspect]
     Active Substance: DABRAFENIB MESYLATE
     Indication: CARCINOID TUMOUR
     Route: 048
     Dates: start: 20201015
  2. NAPROXEN, ELIQUIS, MIRTAZAPINE [Concomitant]
  3. MEKINIST [Suspect]
     Active Substance: TRAMETINIB DIMETHYL SULFOXIDE
     Indication: CARCINOID TUMOUR
     Route: 048
     Dates: start: 20201015

REACTIONS (2)
  - Pyrexia [None]
  - Therapy interrupted [None]
